FAERS Safety Report 6534621-7 (Version None)
Quarter: 2010Q1

REPORT INFORMATION
  Report Type: 
  Country: None (occurrence: None)
  Receive Date: 20100112
  Receipt Date: 20100106
  Transmission Date: 20100710
  Serious: Yes (Other)
  Sender: FDA-Public Use
  Company Number: B0623729A

PATIENT
  Age: 33 Year
  Sex: Female

DRUGS (2)
  1. PANDEMRIX H1N1 [Suspect]
     Indication: PROPHYLAXIS
     Route: 065
     Dates: start: 20091203, end: 20091203
  2. CLAMOXYL [Suspect]
     Route: 065
     Dates: start: 20091218, end: 20091223

REACTIONS (16)
  - BRONCHITIS [None]
  - COUGH [None]
  - DYSPNOEA [None]
  - ERYTHEMA [None]
  - FATIGUE [None]
  - HEADACHE [None]
  - HYPERTHERMIA [None]
  - INFLAMMATION [None]
  - INFLUENZA LIKE ILLNESS [None]
  - MUSCULOSKELETAL STIFFNESS [None]
  - MYALGIA [None]
  - OEDEMA [None]
  - TONSILLITIS [None]
  - URTICARIA [None]
  - VASCULITIS [None]
  - VASODILATATION [None]
